FAERS Safety Report 15400167 (Version 1)
Quarter: 2018Q3

REPORT INFORMATION
  Report Type: Spontaneous
  Country: FR (occurrence: FR)
  Receive Date: 20180919
  Receipt Date: 20180919
  Transmission Date: 20181010
  Serious: Yes (Death, Other)
  Sender: FDA-Public Use
  Company Number: FR-ACCORD-067813

PATIENT
  Age: 42 Year
  Sex: Female

DRUGS (5)
  1. NORTRIPTYLINE [Suspect]
     Active Substance: NORTRIPTYLINE
  2. TRAMADOL. [Suspect]
     Active Substance: TRAMADOL
  3. LYRICA [Suspect]
     Active Substance: PREGABALIN
  4. AMITRIPTYLINE [Suspect]
     Active Substance: AMITRIPTYLINE
  5. PARACETAMOL [Suspect]
     Active Substance: ACETAMINOPHEN

REACTIONS (2)
  - Completed suicide [Fatal]
  - Overdose [Fatal]
